FAERS Safety Report 13951766 (Version 1)
Quarter: 2017Q3

REPORT INFORMATION
  Report Type: Spontaneous
  Country: US (occurrence: US)
  Receive Date: 20170908
  Receipt Date: 20170908
  Transmission Date: 20171128
  Serious: No
  Sender: FDA-Public Use
  Company Number: US-IMPAX LABORATORIES, INC-2016-IPXL-02519

PATIENT
  Age: 25 Year
  Sex: Female
  Weight: 71 kg

DRUGS (2)
  1. LAMOTRIGINE ODT [Suspect]
     Active Substance: LAMOTRIGINE
     Indication: BIPOLAR II DISORDER
     Dosage: ONE TABLET OF 25 MG FOR FIRST 2 WEEKS
     Route: 065
     Dates: start: 20161114, end: 2016
  2. LAMOTRIGINE ODT [Suspect]
     Active Substance: LAMOTRIGINE
     Dosage: ONE TABLET OF 50 MG PER DAY FOR NEXT 2 WEEKS
     Route: 065
     Dates: start: 2016, end: 20161215

REACTIONS (5)
  - Decreased appetite [Not Recovered/Not Resolved]
  - Abdominal discomfort [Not Recovered/Not Resolved]
  - Depressed mood [Recovered/Resolved]
  - Fatigue [Recovering/Resolving]
  - Weight decreased [Unknown]

NARRATIVE: CASE EVENT DATE: 20161115
